FAERS Safety Report 7814008-7 (Version None)
Quarter: 2011Q4

REPORT INFORMATION
  Report Type: 
  Country: None (occurrence: None)
  Receive Date: 20111014
  Receipt Date: 20111007
  Transmission Date: 20120403
  Serious: Yes (Hospitalization, Other)
  Sender: FDA-Public Use
  Company Number: CA-ABBOTT-11P-028-0862095-00

PATIENT
  Sex: Male
  Weight: 81.72 kg

DRUGS (3)
  1. HUMIRA [Suspect]
     Indication: RHEUMATOID ARTHRITIS
     Route: 058
     Dates: start: 20080529, end: 20110612
  2. UNKNOWN ARTHRITIS MEDICATION [Concomitant]
     Indication: RHEUMATOID ARTHRITIS
  3. UNKNOWN HEART MEDICATIONS [Concomitant]
     Indication: CORONARY ARTERY OCCLUSION

REACTIONS (8)
  - ENTEROCOLITIS BACTERIAL [None]
  - CELLULITIS [None]
  - LACERATION [None]
  - BURNING SENSATION [None]
  - POOR PERIPHERAL CIRCULATION [None]
  - SEPSIS [None]
  - SKIN DISORDER [None]
  - PYREXIA [None]
